FAERS Safety Report 12253269 (Version 1)
Quarter: 2016Q2

REPORT INFORMATION
  Report Type: Spontaneous
  Country: FR (occurrence: FR)
  Receive Date: 20160411
  Receipt Date: 20160411
  Transmission Date: 20160815
  Serious: Yes (Hospitalization)
  Sender: FDA-Public Use
  Company Number: FR-GLAXOSMITHKLINE-FR2016GSK047248

PATIENT
  Age: 22 Year
  Sex: Female

DRUGS (1)
  1. LAMICTAL [Suspect]
     Active Substance: LAMOTRIGINE
     Indication: EPILEPSY
     Dosage: 12 DF, SINGLE
     Route: 048
     Dates: start: 20160306, end: 20160306

REACTIONS (3)
  - Intentional overdose [Unknown]
  - Tachycardia [Recovering/Resolving]
  - Vision blurred [Recovered/Resolved]

NARRATIVE: CASE EVENT DATE: 20160306
